FAERS Safety Report 9198732 (Version 1)
Quarter: 2013Q1

REPORT INFORMATION
  Report Type: Report from Study
  Country: JP (occurrence: JP)
  Receive Date: 20130329
  Receipt Date: 20130329
  Transmission Date: 20140127
  Serious: Yes (Hospitalization)
  Sender: FDA-Public Use
  Company Number: JP-JNJFOC-20130316831

PATIENT
  Age: 29 Year
  Sex: Male
  Weight: 52 kg

DRUGS (20)
  1. REMICADE [Suspect]
     Indication: CROHN^S DISEASE
     Route: 042
     Dates: start: 20120309
  2. REMICADE [Suspect]
     Indication: CROHN^S DISEASE
     Route: 042
     Dates: start: 20120815
  3. REMICADE [Suspect]
     Indication: CROHN^S DISEASE
     Dosage: 30TH DOSE
     Route: 042
     Dates: start: 20120625
  4. REMICADE [Suspect]
     Indication: CROHN^S DISEASE
     Dosage: 29TH DOSE
     Route: 042
     Dates: start: 20120502
  5. REMICADE [Suspect]
     Indication: CROHN^S DISEASE
     Route: 042
     Dates: start: 20121010
  6. REMICADE [Suspect]
     Indication: CROHN^S DISEASE
     Route: 042
     Dates: start: 20120116
  7. REMICADE [Suspect]
     Indication: CROHN^S DISEASE
     Route: 042
     Dates: start: 20080425
  8. REMICADE [Suspect]
     Indication: CROHN^S DISEASE
     Route: 042
     Dates: start: 20130125
  9. REMICADE [Suspect]
     Indication: CROHN^S DISEASE
     Route: 042
     Dates: start: 20121128
  10. PREDONINE [Concomitant]
     Indication: CROHN^S DISEASE
     Route: 048
     Dates: start: 20120309, end: 20120415
  11. PREDONINE [Concomitant]
     Indication: CROHN^S DISEASE
     Route: 048
     Dates: start: 20120213, end: 20120308
  12. IMURAN [Concomitant]
     Indication: CROHN^S DISEASE
     Route: 048
     Dates: start: 20120526
  13. PENTASA [Concomitant]
     Indication: CROHN^S DISEASE
     Route: 048
  14. GASCON [Concomitant]
     Indication: CROHN^S DISEASE
     Route: 048
  15. BIOFERMIN [Concomitant]
     Indication: CROHN^S DISEASE
     Route: 048
  16. GASTER [Concomitant]
     Indication: PROPHYLAXIS
     Route: 048
     Dates: end: 20120511
  17. FERROMIA [Concomitant]
     Indication: IRON DEFICIENCY ANAEMIA
     Route: 048
     Dates: end: 20120501
  18. ALLELOCK [Concomitant]
     Indication: PROPHYLAXIS
     Route: 048
     Dates: end: 20120416
  19. LOXONIN [Concomitant]
     Indication: HEADACHE
     Route: 048
  20. CRAVIT [Concomitant]
     Indication: CYSTITIS
     Route: 048

REACTIONS (5)
  - Hypovitaminosis [Recovered/Resolved]
  - Crohn^s disease [Unknown]
  - Dysarthria [Unknown]
  - Gait disturbance [Unknown]
  - Vision blurred [Unknown]
